FAERS Safety Report 5339164-4 (Version None)
Quarter: 2007Q2

REPORT INFORMATION
  Report Type: 
  Country: None (occurrence: None)
  Receive Date: 20070530
  Receipt Date: 20070524
  Transmission Date: 20071010
  Serious: Yes (Hospitalization, Other)
  Sender: FDA-Public Use
  Company Number: US-BOEHRINGER INGELHEIM PHARMACEUTICALS, INC.-2007-DE-03089GD

PATIENT

DRUGS (4)
  1. DIPYRIDAMOLE [Suspect]
     Indication: PANCREATIC CARCINOMA NON-RESECTABLE
     Route: 048
  2. FLUOROURACIL [Suspect]
     Indication: PANCREATIC CARCINOMA NON-RESECTABLE
     Route: 042
  3. LEUCOVORIN CALCIUM [Suspect]
     Indication: PANCREATIC CARCINOMA NON-RESECTABLE
     Route: 042
  4. MITOMYCIN [Suspect]
     Indication: PANCREATIC CARCINOMA NON-RESECTABLE
     Dosage: UP TO FOUR DOSES, EACH DOSE NOT TO EXCEED 15 MG, AND THE TOTAL CUMULATIVE DOSE OF MITOMYCIN WAS NOT
     Route: 042

REACTIONS (18)
  - ANOREXIA [None]
  - ASTHENIA [None]
  - CHOLESTASIS [None]
  - DEHYDRATION [None]
  - DIARRHOEA [None]
  - DISEASE PROGRESSION [None]
  - DRUG EFFECT DECREASED [None]
  - DRUG INEFFECTIVE [None]
  - FATIGUE [None]
  - GASTROINTESTINAL HAEMORRHAGE [None]
  - HAEMOLYTIC URAEMIC SYNDROME [None]
  - NAUSEA [None]
  - NEUTROPENIC SEPSIS [None]
  - PALMAR-PLANTAR ERYTHRODYSAESTHESIA SYNDROME [None]
  - PYREXIA [None]
  - SEPSIS [None]
  - STOMATITIS [None]
  - VOMITING [None]
